FAERS Safety Report 20233495 (Version 1)
Quarter: 2021Q4

REPORT INFORMATION
  Report Type: Report from Study
  Country: US (occurrence: US)
  Receive Date: 20211227
  Receipt Date: 20211227
  Transmission Date: 20220303
  Serious: Yes (Other)
  Sender: FDA-Public Use
  Company Number: US-TAKEDA-2021TUS081001

PATIENT
  Sex: Female

DRUGS (1)
  1. HUMAN IMMUNOGLOBULIN G [Suspect]
     Active Substance: HUMAN IMMUNOGLOBULIN G
     Indication: Selective IgG subclass deficiency
     Dosage: UNK
     Route: 065

REACTIONS (7)
  - Mast cell activation syndrome [Unknown]
  - Vaccination complication [Unknown]
  - Ehlers-Danlos syndrome [Unknown]
  - Oral herpes [Unknown]
  - Wound [Unknown]
  - Neuralgia [Unknown]
  - Fatigue [Unknown]
